FAERS Safety Report 10424917 (Version 2)
Quarter: 2014Q4

REPORT INFORMATION
  Report Type: Report from Study
  Country: AR (occurrence: AR)
  Receive Date: 20140902
  Receipt Date: 20141105
  Transmission Date: 20150528
  Serious: Yes (Death, Hospitalization, Other)
  Sender: FDA-Public Use
  Company Number: AR-ABBVIE-14K-007-1277517-00

PATIENT
  Age: 84 Year
  Sex: Female

DRUGS (1)
  1. HUMIRA [Suspect]
     Active Substance: ADALIMUMAB
     Indication: RHEUMATOID ARTHRITIS
     Route: 058
     Dates: start: 20101130, end: 20140626

REACTIONS (6)
  - Lung disorder [Not Recovered/Not Resolved]
  - General physical health deterioration [Unknown]
  - Deformity [Unknown]
  - Rheumatoid arthritis [Fatal]
  - Pneumonia [Recovered/Resolved]
  - Cardiac disorder [Not Recovered/Not Resolved]

NARRATIVE: CASE EVENT DATE: 20140714
